FAERS Safety Report 9617188 (Version 3)
Quarter: 2013Q4

REPORT INFORMATION
  Report Type: Spontaneous
  Country: US (occurrence: US)
  Receive Date: 20131011
  Receipt Date: 20131022
  Transmission Date: 20140711
  Serious: Yes (Hospitalization, Congenital Anomaly, Other)
  Sender: FDA-Public Use
  Company Number: US-PFIZER INC-2013281097

PATIENT
  Sex: Male

DRUGS (6)
  1. ZOLOFT [Suspect]
     Dosage: UNK
     Route: 064
  2. SERTRALINE HCL [Suspect]
     Dosage: 50 MG, UNK
     Route: 064
     Dates: start: 20100127
  3. METOCLOPRAMIDE [Concomitant]
     Dosage: 10 MG, UNK
     Route: 064
     Dates: start: 20100101
  4. METRONIDAZOLE [Concomitant]
     Dosage: 500 MG, UNK
     Route: 064
     Dates: start: 20100127
  5. PRENATAL PLUS [Concomitant]
     Dosage: UNK
     Route: 064
     Dates: start: 20100127
  6. FLUCONAZOLE [Concomitant]
     Dosage: 150 MG, EVERY THREE DAYS
     Route: 064
     Dates: start: 20100415

REACTIONS (3)
  - Maternal exposure during pregnancy [Unknown]
  - Hypospadias [Unknown]
  - Congenital anomaly [Unknown]
